FAERS Safety Report 8545371 (Version 2)
Quarter: 2013Q2

REPORT INFORMATION
  Report Type: Spontaneous
  Country: CA (occurrence: CA)
  Receive Date: 20120503
  Receipt Date: 20130605
  Transmission Date: 20140414
  Serious: Yes (Other)
  Sender: FDA-Public Use
  Company Number: CA-JNJFOC-20120411732

PATIENT
  Sex: Female
  Weight: 65.5 kg

DRUGS (9)
  1. REMICADE [Suspect]
     Indication: RHEUMATOID ARTHRITIS
     Route: 042
  2. REMICADE [Suspect]
     Indication: RHEUMATOID ARTHRITIS
     Dosage: TOTAL OF 73 DOSES AT THIS DATE
     Route: 042
     Dates: start: 20120424
  3. METHOTREXATE [Concomitant]
  4. FOLIC ACID [Concomitant]
  5. ALTACE [Concomitant]
  6. ASAPHEN [Concomitant]
  7. AMITRIPTYLINE [Concomitant]
  8. MONOCOR [Concomitant]
  9. ZOCOR [Concomitant]

REACTIONS (1)
  - Skin cancer [Unknown]
